FAERS Safety Report 26133374 (Version 1)
Quarter: 2025Q4

REPORT INFORMATION
  Report Type: Spontaneous
  Country: EU (occurrence: EU)
  Receive Date: 20251209
  Receipt Date: 20251209
  Transmission Date: 20260117
  Serious: Yes (Hospitalization, Other)
  Sender: AUROBINDO
  Company Number: EU-AFSSAPS-PA2025001079

PATIENT
  Age: 74 Year
  Sex: Male
  Weight: 66.9 kg

DRUGS (11)
  1. ATORVASTATIN [Suspect]
     Active Substance: ATORVASTATIN
     Indication: Dyslipidaemia
     Dosage: 10 MILLIGRAM, ONCE A DAY
     Dates: start: 20250204
  2. RAMIPRIL [Suspect]
     Active Substance: RAMIPRIL
     Indication: Hypertension
     Dosage: 1.25 MILLIGRAM, ONCE A DAY
     Dates: start: 20240118, end: 20250703
  3. RAMIPRIL [Suspect]
     Active Substance: RAMIPRIL
     Dosage: 1.25 MILLIGRAM, ONCE A DAY
     Dates: start: 202507, end: 20250823
  4. DUPIXENT [Suspect]
     Active Substance: DUPILUMAB
     Indication: Pemphigoid
     Dosage: 300 MILLIGRAM
     Dates: start: 20240110, end: 20241009
  5. DUPIXENT [Suspect]
     Active Substance: DUPILUMAB
     Dosage: 300 MILLIGRAM, EVERY WEEK
     Dates: start: 20241009, end: 20250828
  6. DAPAGLIFLOZIN PROPANEDIOL [Suspect]
     Active Substance: DAPAGLIFLOZIN PROPANEDIOL
     Indication: Renal failure
     Dosage: 10 MILLIGRAM, ONCE A DAY
     Dates: start: 20240212, end: 20250703
  7. DAPAGLIFLOZIN PROPANEDIOL [Suspect]
     Active Substance: DAPAGLIFLOZIN PROPANEDIOL
     Dosage: 10 MILLIGRAM, ONCE A DAY
     Dates: start: 202507, end: 20250823
  8. LOPRESSOR [Concomitant]
     Active Substance: METOPROLOL TARTRATE
     Indication: Product used for unknown indication
     Dosage: UNK
     Route: 065
  9. METFORMIN HYDROCHLORIDE [Concomitant]
     Active Substance: METFORMIN HYDROCHLORIDE
     Indication: Product used for unknown indication
     Dosage: UNK
     Route: 065
  10. LEVOTHYROXINE SODIUM\LIOTHYRONINE SODIUM [Concomitant]
     Active Substance: LEVOTHYROXINE SODIUM\LIOTHYRONINE SODIUM
     Indication: Product used for unknown indication
     Dosage: UNK
     Route: 065
  11. CETIRIZINE HYDROCHLORIDE [Concomitant]
     Active Substance: CETIRIZINE HYDROCHLORIDE
     Indication: Product used for unknown indication
     Dosage: UNK
     Route: 065

REACTIONS (1)
  - Tubulointerstitial nephritis [Recovering/Resolving]

NARRATIVE: CASE EVENT DATE: 20250823
